FAERS Safety Report 16332740 (Version 1)
Quarter: 2019Q2

REPORT INFORMATION
  Report Type: Spontaneous
  Country: US (occurrence: US)
  Receive Date: 20190413
  Receipt Date: 20190413
  Transmission Date: 20190711
  Serious: Yes (Other)
  Sender: FDA-Public Use
  Company Number: None

PATIENT
  Age: 47 Year
  Sex: Male
  Weight: 77.11 kg

DRUGS (1)
  1. MESALAMINE 1.2 GRAMS [Suspect]
     Active Substance: MESALAMINE
     Indication: CROHN^S DISEASE
     Route: 048
     Dates: start: 201806, end: 201809

REACTIONS (4)
  - Product substitution issue [None]
  - Dyspnoea [None]
  - Pain [None]
  - Lupus-like syndrome [None]

NARRATIVE: CASE EVENT DATE: 201806
